FAERS Safety Report 6812981-7 (Version None)
Quarter: 2010Q3

REPORT INFORMATION
  Report Type: 
  Country: None (occurrence: None)
  Receive Date: 20100701
  Receipt Date: 20100330
  Transmission Date: 20110219
  Serious: Yes (Hospitalization)
  Sender: FDA-Public Use
  Company Number: JP-PFIZER INC-2010078625

PATIENT
  Age: 66 Year
  Sex: Male
  Weight: 54.1 kg

DRUGS (8)
  1. SUNITINIB MALATE [Suspect]
     Indication: RENAL CELL CARCINOMA
     Dosage: 50 MG, 1X/DAY
     Route: 048
     Dates: start: 20090511, end: 20090526
  2. NATRIX [Concomitant]
     Dosage: 2 MG, 1X/DAY
     Route: 048
  3. ADALAT CC [Concomitant]
     Dosage: 20 MG, 1X/DAY
     Route: 048
  4. MICARDIS [Concomitant]
     Dosage: 10 MG, 1X/DAY
     Route: 048
  5. ZYLORIC ^FAES^ [Concomitant]
     Dosage: 200 MG, 2X/DAY
     Route: 048
  6. TAGAMET DUAL ACTION [Concomitant]
     Dosage: 800 MG, 2X/DAY
     Route: 048
  7. MAGNESIUM OXIDE [Concomitant]
     Dosage: 990 MG, 3X/DAY
     Route: 048
  8. THYRADIN S [Concomitant]
     Dosage: 25 UG, 1X/DAY
     Route: 048

REACTIONS (4)
  - ANAEMIA [None]
  - HYPERCALCAEMIA [None]
  - HYPONATRAEMIA [None]
  - MUSCULAR WEAKNESS [None]
